FAERS Safety Report 11741830 (Version 1)
Quarter: 2015Q4

REPORT INFORMATION
  Report Type: Spontaneous
  Country: US (occurrence: None)
  Receive Date: 20151113
  Receipt Date: 20151113
  Transmission Date: 20160304
  Serious: Yes (Other)
  Sender: FDA-Public Use
  Company Number: None

PATIENT
  Age: 64 Year
  Sex: Female
  Weight: 64.41 kg

DRUGS (6)
  1. LEXAPRO [Suspect]
     Active Substance: ESCITALOPRAM OXALATE
     Indication: DEPRESSION
     Dosage: 1 PILL
     Route: 048
     Dates: start: 20150831, end: 20151109
  2. FISH OIL [Concomitant]
     Active Substance: FISH OIL
  3. LEXAPRO [Suspect]
     Active Substance: ESCITALOPRAM OXALATE
     Indication: ANXIETY
     Dosage: 1 PILL
     Route: 048
     Dates: start: 20150831, end: 20151109
  4. SYNTHROID [Concomitant]
     Active Substance: LEVOTHYROXINE SODIUM
  5. VITAMIN D [Concomitant]
     Active Substance: CHOLECALCIFEROL
  6. CALCIUM [Concomitant]
     Active Substance: CALCIUM

REACTIONS (9)
  - Panic attack [None]
  - Heart rate irregular [None]
  - Product quality issue [None]
  - Hypersensitivity [None]
  - Mania [None]
  - Restlessness [None]
  - Hallucination, visual [None]
  - Amnesia [None]
  - Aura [None]

NARRATIVE: CASE EVENT DATE: 20151106
